FAERS Safety Report 4660242-7 (Version None)
Quarter: 2005Q2

REPORT INFORMATION
  Report Type: 
  Country: None (occurrence: None)
  Receive Date: 20050427
  Receipt Date: 20050120
  Transmission Date: 20051028
  Serious: No
  Sender: FDA-Public Use
  Company Number: 211876

PATIENT
  Age: 75 Year
  Sex: Male
  Weight: 76.2 kg

DRUGS (1)
  1. XOLAIR [Suspect]
     Dosage: 375 MG, Q2W
     Dates: start: 20041104

REACTIONS (3)
  - DIZZINESS [None]
  - HYPOTENSION [None]
  - WEIGHT INCREASED [None]
